FAERS Safety Report 10071333 (Version 2)
Quarter: 2014Q2

REPORT INFORMATION
  Report Type: Spontaneous
  Country: BR (occurrence: BR)
  Receive Date: 20140410
  Receipt Date: 20140410
  Transmission Date: 20141212
  Serious: Yes (Hospitalization)
  Sender: FDA-Public Use
  Company Number: BR-B.I. PHARMACEUTICALS,INC./RIDGEFIELD-2013-BI-39157BR

PATIENT
  Age: 60 Year
  Sex: Male
  Weight: 70 kg

DRUGS (5)
  1. SPIRIVA RESPIMAT [Suspect]
     Indication: CHRONIC OBSTRUCTIVE PULMONARY DISEASE
     Dosage: 5 MCG
     Route: 055
     Dates: start: 20131119
  2. SERETIDE [Concomitant]
     Indication: CHRONIC OBSTRUCTIVE PULMONARY DISEASE
     Route: 055
     Dates: start: 2011
  3. MEDICATION NOT FURTHER SPECIFIED [Concomitant]
     Indication: DEPRESSION
     Route: 048
  4. MIRTAZATINA [Concomitant]
     Indication: DEPRESSION
     Dosage: 15 MG
     Route: 048
  5. MIRTAZATINA [Concomitant]
     Dosage: 30 MG
     Route: 048

REACTIONS (4)
  - Psychiatric symptom [Recovered/Resolved]
  - Prostatic cyst [Not Recovered/Not Resolved]
  - Pruritus generalised [Recovered/Resolved]
  - Urinary retention [Not Recovered/Not Resolved]
